FAERS Safety Report 10162879 (Version 2)
Quarter: 2014Q2

REPORT INFORMATION
  Report Type: Report from Study
  Country: CA (occurrence: CA)
  Receive Date: 20140509
  Receipt Date: 20140528
  Transmission Date: 20141212
  Serious: Yes (Death)
  Sender: FDA-Public Use
  Company Number: PHHY2014CA056263

PATIENT
  Age: 84 Year
  Sex: Male

DRUGS (1)
  1. CLOZARIL [Suspect]
     Indication: DEMENTIA
     Dosage: 25 MG, DAILY
     Route: 048
     Dates: start: 20131101, end: 20140318

REACTIONS (1)
  - Death [Fatal]
